FAERS Safety Report 6172379-4 (Version None)
Quarter: 2009Q2

REPORT INFORMATION
  Report Type: 
  Country: None (occurrence: None)
  Receive Date: 20090429
  Receipt Date: 20090421
  Transmission Date: 20091009
  Serious: Yes (Hospitalization)
  Sender: FDA-Public Use
  Company Number: PHHY2009TH15096

PATIENT
  Sex: Male

DRUGS (2)
  1. ZOMETA [Suspect]
     Indication: VITAMIN SUPPLEMENTATION
     Dosage: UNK
     Dates: start: 20090401
  2. ZOMETA [Suspect]
     Indication: MINERAL SUPPLEMENTATION

REACTIONS (5)
  - ACUTE PULMONARY OEDEMA [None]
  - CARDIAC FAILURE [None]
  - INFLUENZA LIKE ILLNESS [None]
  - PLEURAL EFFUSION [None]
  - PYREXIA [None]
